FAERS Safety Report 8578907-3 (Version None)
Quarter: 2012Q3

REPORT INFORMATION
  Report Type: 
  Country: None (occurrence: None)
  Receive Date: 20120808
  Receipt Date: 20120727
  Transmission Date: 20120928
  Serious: Yes (Hospitalization)
  Sender: FDA-Public Use
  Company Number: JP-AMGEN-JPNSP2012041052

PATIENT
  Age: 59 Year
  Sex: Female
  Weight: 42.5 kg

DRUGS (11)
  1. PREDNISOLONE [Concomitant]
     Dosage: 10 MG, 1X/DAY
  2. BREDININ [Concomitant]
     Dosage: 150 MG, 1X/DAY
     Route: 048
     Dates: start: 20050401
  3. PREDNISOLONE [Concomitant]
     Dosage: 3 MG, 2X/DAY
     Route: 048
     Dates: start: 20050401
  4. ALENDRONATE SODIUM [Concomitant]
     Dosage: 35 MG, WEEKLY
     Route: 048
     Dates: start: 20050401
  5. SENNOSIDE A [Concomitant]
     Dosage: 24 MG, 1X/DAY
     Route: 048
     Dates: start: 20050401
  6. FRAMYCETIN [Concomitant]
     Dosage: UNK
  7. ENBREL [Suspect]
     Indication: RHEUMATOID ARTHRITIS
     Dosage: 25 MG, WEEKLY
     Route: 058
     Dates: start: 20110805, end: 20120305
  8. CINAL [Concomitant]
     Dosage: 1 DF, 3X/DAY
     Route: 048
     Dates: start: 20050415
  9. OMEPRAZOLE [Concomitant]
     Dosage: 20 MG, 1X/DAY
     Route: 048
     Dates: start: 20081029
  10. PREDNISOLONE [Concomitant]
     Dosage: 7 MG, 1X/DAY
  11. FOIPAN [Concomitant]
     Dosage: 100 MG, 3X/DAY
     Route: 048
     Dates: start: 20050415

REACTIONS (1)
  - PEMPHIGOID [None]
